FAERS Safety Report 7104776-4 (Version None)
Quarter: 2010Q4

REPORT INFORMATION
  Report Type: 
  Country: None (occurrence: None)
  Receive Date: 20101108
  Receipt Date: 20101027
  Transmission Date: 20110411
  Serious: Yes (Other)
  Sender: FDA-Public Use
  Company Number: 011641

PATIENT
  Age: 89 Year
  Sex: Female
  Weight: 46.6 kg

DRUGS (4)
  1. SAMSCA [Suspect]
     Indication: HYPONATRAEMIA
     Dosage: 15 MG, UNKNOWN, ORAL
     Route: 048
     Dates: start: 20101016, end: 20101018
  2. AMIODARONE HCL [Concomitant]
  3. ASPIRIN [Concomitant]
  4. BISOPROLOL FUMARATE [Concomitant]

REACTIONS (4)
  - DIZZINESS [None]
  - MALAISE [None]
  - RASH GENERALISED [None]
  - RENAL IMPAIRMENT [None]
